FAERS Safety Report 8019909-5 (Version None)
Quarter: 2012Q1

REPORT INFORMATION
  Report Type: 
  Country: None (occurrence: None)
  Receive Date: 20120103
  Receipt Date: 20111227
  Transmission Date: 20120608
  Serious: Yes (Life-Threatening, Hospitalization)
  Sender: FDA-Public Use
  Company Number: US-BAYER-201028342NA

PATIENT
  Age: 27 Year
  Sex: Female
  Weight: 58.957 kg

DRUGS (6)
  1. YASMIN [Suspect]
     Indication: ACNE
     Dosage: UNK
     Dates: start: 20070605, end: 20070722
  2. EFFEXOR [Concomitant]
  3. YASMIN [Suspect]
  4. YASMIN [Suspect]
     Indication: PREMENSTRUAL SYNDROME
  5. ALPRAZOLAM [Concomitant]
  6. PREVACID [Concomitant]

REACTIONS (14)
  - PULMONARY EMBOLISM [None]
  - PULMONARY FIBROSIS [None]
  - PAIN IN EXTREMITY [None]
  - CHEST PAIN [None]
  - PALPITATIONS [None]
  - CONFUSIONAL STATE [None]
  - LOSS OF CONSCIOUSNESS [None]
  - ORTHOSTATIC HYPOTENSION [None]
  - SYNCOPE [None]
  - MUSCLE SPASMS [None]
  - PULMONARY THROMBOSIS [None]
  - LUNG DISORDER [None]
  - DYSARTHRIA [None]
  - DYSPNOEA [None]
